FAERS Safety Report 11752800 (Version 2)
Quarter: 2015Q4

REPORT INFORMATION
  Report Type: Spontaneous
  Country: CN (occurrence: CN)
  Receive Date: 20151119
  Receipt Date: 20151212
  Transmission Date: 20160304
  Serious: Yes (Hospitalization)
  Sender: FDA-Public Use
  Company Number: CN-ASTRAZENECA-2015SF10958

PATIENT
  Age: 55 Year
  Sex: Female

DRUGS (4)
  1. BETALOC ZOK [Suspect]
     Active Substance: METOPROLOL SUCCINATE
     Indication: HYPERTENSION
     Route: 048
  2. COZAAR [Concomitant]
     Active Substance: LOSARTAN POTASSIUM
     Indication: HYPERTENSION
  3. EUTHYROX [Concomitant]
     Active Substance: LEVOTHYROXINE SODIUM
  4. BETALOC ZOK [Suspect]
     Active Substance: METOPROLOL SUCCINATE
     Indication: HYPERTENSION
     Route: 048

REACTIONS (8)
  - Angina pectoris [Unknown]
  - Heart rate decreased [Unknown]
  - Gastric disorder [Unknown]
  - Cardiac discomfort [Unknown]
  - Chest pain [Unknown]
  - Exophthalmos [Unknown]
  - Therapy cessation [Unknown]
  - Extrasystoles [Unknown]

NARRATIVE: CASE EVENT DATE: 2015
